FAERS Safety Report 7331583-X (Version None)
Quarter: 2011Q1

REPORT INFORMATION
  Report Type: 
  Country: None (occurrence: None)
  Receive Date: 20110304
  Receipt Date: 20101129
  Transmission Date: 20110831
  Serious: No
  Sender: FDA-Public Use
  Company Number: A0897554A

PATIENT
  Age: 66 Year
  Sex: Male

DRUGS (7)
  1. TRAZODONE [Concomitant]
  2. LAMOTRIGINE [Suspect]
     Route: 065
  3. CITALOPRAM [Concomitant]
  4. CLARITIN [Suspect]
     Dosage: 10MG TWICE PER DAY
     Route: 048
     Dates: end: 20101101
  5. MULTIVITAMIN [Concomitant]
  6. OLANZAPINE [Concomitant]
  7. OMEPRAZOLE [Concomitant]

REACTIONS (11)
  - CHILLS [None]
  - TREMOR [None]
  - DRY MOUTH [None]
  - SENSORY LOSS [None]
  - URINARY INCONTINENCE [None]
  - HEADACHE [None]
  - FATIGUE [None]
  - HYPOAESTHESIA [None]
  - SOMNOLENCE [None]
  - FALL [None]
  - ACCIDENTAL OVERDOSE [None]
